FAERS Safety Report 22113569 (Version 2)
Quarter: 2023Q1

REPORT INFORMATION
  Report Type: Spontaneous
  Country: US (occurrence: US)
  Receive Date: 20230320
  Receipt Date: 20230328
  Transmission Date: 20230417
  Serious: No
  Sender: FDA-Public Use
  Company Number: US-LUPIN PHARMACEUTICALS INC.-2023-02064

PATIENT

DRUGS (2)
  1. ORPHENADRINE [Suspect]
     Active Substance: ORPHENADRINE
     Indication: Muscle spasms
     Dosage: 1 DOSAGE FORM, BID AS NEEDED.
     Route: 048
     Dates: start: 20230131, end: 20230219
  2. MELOXICAM [Suspect]
     Active Substance: MELOXICAM
     Indication: Pain
     Dosage: 7.5 MILLIGRAM, QD (11 LEFT IN BOTTLE)
     Route: 048
     Dates: start: 20230130, end: 20230219

REACTIONS (1)
  - Rash [Recovering/Resolving]
